FAERS Safety Report 9631364 (Version 1)
Quarter: 2013Q4

REPORT INFORMATION
  Report Type: Report from Study
  Country: LB (occurrence: LB)
  Receive Date: 20131018
  Receipt Date: 20131018
  Transmission Date: 20140711
  Serious: Yes (Death)
  Sender: FDA-Public Use
  Company Number: LB-SA-2013SA104004

PATIENT
  Age: 54 Year
  Sex: Male

DRUGS (6)
  1. LANTUS SOLOSTAR [Suspect]
     Indication: DIABETES MELLITUS
     Dosage: 21-30 IU DAILY?START DATE: 1 YEAR 6 MONTHS AGO
     Route: 058
     Dates: start: 2012
  2. SOLOSTAR [Concomitant]
     Indication: DEVICE THERAPY
  3. GLUCOPHAGE [Concomitant]
     Indication: DIABETES MELLITUS
     Route: 048
  4. CONCOR [Concomitant]
     Route: 048
  5. AMLOR [Concomitant]
     Route: 048
  6. LIPANTHYL [Concomitant]
     Route: 048

REACTIONS (1)
  - Embolism [Fatal]
